FAERS Safety Report 8232699-6 (Version None)
Quarter: 2012Q1

REPORT INFORMATION
  Report Type: 
  Country: None (occurrence: None)
  Receive Date: 20120323
  Receipt Date: 20120309
  Transmission Date: 20120608
  Serious: Yes (Other)
  Sender: FDA-Public Use
  Company Number: CHPA2012CA004864

PATIENT
  Age: 58 Year
  Sex: Female

DRUGS (5)
  1. LAMICTAL [Suspect]
     Dosage: 200 MG, Q12H
     Route: 048
     Dates: end: 20080101
  2. TRILEPTAL [Suspect]
     Dosage: 600 MG, Q12H
     Route: 048
     Dates: start: 20080101
  3. TRILEPTAL [Suspect]
     Indication: EPILEPSY
     Dosage: 600 MG, Q8H
     Route: 048
     Dates: end: 20080101
  4. LAMICTAL [Suspect]
     Indication: EPILEPSY
     Dosage: 400 MG, Q12H
     Route: 048
     Dates: end: 20080101
  5. KERI FAST ABSORBING FRAGRANCE FREE [Suspect]
     Indication: DRY SKIN
     Dosage: APPLIED 5-6 TIMES PER DAY
     Route: 061

REACTIONS (10)
  - EPILEPSY [None]
  - CATARACT [None]
  - FEELING ABNORMAL [None]
  - DERMATITIS ALLERGIC [None]
  - GRAND MAL CONVULSION [None]
  - DERMATITIS INFECTED [None]
  - RETINAL DETACHMENT [None]
  - ECZEMA [None]
  - RASH [None]
  - SCAB [None]
